FAERS Safety Report 6906580-6 (Version None)
Quarter: 2010Q3

REPORT INFORMATION
  Report Type: 
  Country: None (occurrence: None)
  Receive Date: 20100804
  Receipt Date: 20100720
  Transmission Date: 20110219
  Serious: Yes (Other)
  Sender: FDA-Public Use
  Company Number: US-BAYER-201020315NA

PATIENT
  Age: 37 Year
  Sex: Female
  Weight: 107 kg

DRUGS (9)
  1. YAZ [Suspect]
     Indication: PRODUCT USED FOR UNKNOWN INDICATION
     Route: 048
     Dates: start: 20051101, end: 20100412
  2. YASMIN [Suspect]
     Indication: CONTRACEPTION
     Route: 048
     Dates: start: 20051101, end: 20100412
  3. DROSPIRENONE AND EHTINYL ESTRADIOL [Suspect]
     Indication: CONTRACEPTION
     Route: 048
     Dates: start: 20051101, end: 20100412
  4. ATENOLOL [Concomitant]
     Indication: PRODUCT USED FOR UNKNOWN INDICATION
     Route: 065
  5. WELLBUTRIN [Concomitant]
     Indication: PRODUCT USED FOR UNKNOWN INDICATION
     Route: 065
  6. HYDROCHLOROAZIDE [Concomitant]
     Indication: PRODUCT USED FOR UNKNOWN INDICATION
     Route: 065
  7. IBUPROFEN (ADVIL) [Concomitant]
     Indication: PRODUCT USED FOR UNKNOWN INDICATION
     Route: 065
  8. ACETAMINOPHEN [Concomitant]
     Indication: PRODUCT USED FOR UNKNOWN INDICATION
     Route: 065
  9. ALEVE (CAPLET) [Concomitant]
     Indication: PRODUCT USED FOR UNKNOWN INDICATION
     Route: 065

REACTIONS (3)
  - ABDOMINAL PAIN [None]
  - CHOLELITHIASIS [None]
  - GALLBLADDER DISORDER [None]
